FAERS Safety Report 9387497 (Version 1)
Quarter: 2013Q2

REPORT INFORMATION
  Report Type: Spontaneous
  Country: BR (occurrence: None)
  Receive Date: 20130627
  Receipt Date: 20130627
  Transmission Date: 20140414
  Serious: Yes (Hospitalization)
  Sender: FDA-Public Use
  Company Number: BR-IGSA-IG1372

PATIENT
  Age: 38 Year
  Sex: Female
  Weight: 52 kg

DRUGS (3)
  1. FLEBOGAMMA %5 5 G/100ML (HUMAN NORMAL IMMUNOGLOBULIN) (5 PCT) [Suspect]
     Indication: MULTIFOCAL MOTOR NEUROPATHY
     Route: 042
     Dates: start: 201211, end: 201303
  2. OMEPRAZOLE [Concomitant]
  3. TYLEX /00020001/ [Concomitant]

REACTIONS (6)
  - Restlessness [None]
  - Myalgia [None]
  - Tremor [None]
  - Hypertension [None]
  - Tachycardia [None]
  - Hypothermia [None]
